FAERS Safety Report 7092866-4 (Version None)
Quarter: 2010Q4

REPORT INFORMATION
  Report Type: 
  Country: None (occurrence: None)
  Receive Date: 20101110
  Receipt Date: 20101028
  Transmission Date: 20110411
  Serious: No
  Sender: FDA-Public Use
  Company Number: US-PFIZER INC-2010137751

PATIENT
  Sex: Male
  Weight: 81.633 kg

DRUGS (6)
  1. LIPITOR [Suspect]
     Indication: BLOOD CHOLESTEROL INCREASED
     Dosage: 80 MG, 1X/DAY
     Route: 048
  2. ATENOLOL [Concomitant]
     Indication: CARDIAC OPERATION
     Dosage: UNK
     Route: 048
     Dates: start: 19800101
  3. ATENOLOL [Concomitant]
     Indication: ARTERIAL DISORDER
  4. HYDROCHLOROTHIAZIDE [Concomitant]
     Indication: HYPERTENSION
     Dosage: UNK
     Route: 048
     Dates: start: 19930101
  5. TERAZOSIN [Concomitant]
     Indication: HYPERTENSION
     Dosage: UNK
     Route: 048
  6. PLAVIX [Concomitant]
     Indication: ARTERIAL THROMBOSIS
     Dosage: UNK

REACTIONS (1)
  - MUSCLE SPASMS [None]
